FAERS Safety Report 11511187 (Version 2)
Quarter: 2015Q3

REPORT INFORMATION
  Report Type: Spontaneous
  Country: CA (occurrence: CA)
  Receive Date: 20150915
  Receipt Date: 20150918
  Transmission Date: 20151125
  Serious: Yes (Other)
  Sender: FDA-Public Use
  Company Number: CA-TEVA-592340USA

PATIENT
  Age: 56 Year
  Sex: Female

DRUGS (2)
  1. SYSTANE DROPS [Concomitant]
  2. TEVA-DORZOTIMOL [Suspect]
     Active Substance: DORZOLAMIDE\TIMOLOL
     Indication: GLAUCOMA
     Dosage: 1 DROP IN BOTH EYES TWICE DAILY
     Route: 031
     Dates: start: 20141001

REACTIONS (2)
  - Eye pain [Unknown]
  - Intraocular pressure test abnormal [Unknown]

NARRATIVE: CASE EVENT DATE: 20150907
